FAERS Safety Report 13427315 (Version 2)
Quarter: 2017Q2

REPORT INFORMATION
  Report Type: Spontaneous
  Country: CA (occurrence: CA)
  Receive Date: 20170411
  Receipt Date: 20170511
  Transmission Date: 20170830
  Serious: Yes (Life-Threatening, Other)
  Sender: FDA-Public Use
  Company Number: CA-JNJFOC-20170405476

PATIENT
  Age: 71 Year
  Sex: Male
  Weight: 70.76 kg

DRUGS (6)
  1. VITAMIN D [Concomitant]
     Active Substance: CHOLECALCIFEROL
     Route: 065
     Dates: start: 20150709
  2. LIPITOR [Concomitant]
     Active Substance: ATORVASTATIN CALCIUM
     Route: 065
     Dates: start: 20150709
  3. INVOKANA [Suspect]
     Active Substance: CANAGLIFLOZIN
     Indication: TYPE 1 DIABETES MELLITUS
     Dosage: FOR 06 MONTHS
     Route: 065
     Dates: start: 20151222
  4. SYNTHROID [Concomitant]
     Active Substance: LEVOTHYROXINE SODIUM
     Route: 065
     Dates: start: 20150709
  5. ZESTRIL [Concomitant]
     Active Substance: LISINOPRIL
     Route: 065
     Dates: start: 20151222
  6. CALCIUM [Concomitant]
     Active Substance: CALCIUM
     Route: 065
     Dates: start: 20150709

REACTIONS (8)
  - Generalised oedema [Unknown]
  - Product use in unapproved indication [Unknown]
  - Cardiac failure congestive [Recovered/Resolved]
  - Ketosis [Unknown]
  - Weight decreased [Unknown]
  - Fluid retention [Unknown]
  - Dehydration [Unknown]
  - Off label use [Unknown]

NARRATIVE: CASE EVENT DATE: 20160705
